FAERS Safety Report 16999723 (Version 7)
Quarter: 2021Q2

REPORT INFORMATION
  Report Type: Report from Study
  Country: CA (occurrence: CA)
  Receive Date: 20191105
  Receipt Date: 20210429
  Transmission Date: 20210716
  Serious: Yes (Other)
  Sender: FDA-Public Use
  Company Number: PHHY2018CA048986

PATIENT
  Age: 66 Year
  Sex: Male

DRUGS (8)
  1. ILARIS [Suspect]
     Active Substance: CANAKINUMAB
     Dosage: 150 MG, EVERY 8 WEEKS
     Route: 058
     Dates: start: 20180518
  2. ILARIS [Suspect]
     Active Substance: CANAKINUMAB
     Dosage: 150 MG, EVERY 8 WEEKS
     Route: 058
  3. ILARIS [Suspect]
     Active Substance: CANAKINUMAB
     Dosage: 150 MG, EVERY 8 WEEKS
     Route: 058
     Dates: start: 20190829
  4. ILARIS [Suspect]
     Active Substance: CANAKINUMAB
     Indication: CRYOPYRIN ASSOCIATED PERIODIC SYNDROME
     Dosage: 150 MG, EVERY 8WEEKS
     Route: 058
     Dates: start: 20180129
  5. ILARIS [Suspect]
     Active Substance: CANAKINUMAB
     Dosage: 150 MG, EVERY 8 WEEKS
     Route: 058
     Dates: start: 20190103
  6. ILARIS [Suspect]
     Active Substance: CANAKINUMAB
     Dosage: 150 MG, EVERY 8 WEEKS
     Route: 058
     Dates: start: 20200325
  7. ILARIS [Suspect]
     Active Substance: CANAKINUMAB
     Dosage: 150 MG, EVERY 8 WEEKS
     Route: 058
     Dates: start: 20181108
  8. ILARIS [Suspect]
     Active Substance: CANAKINUMAB
     Dosage: 150 MG, EVERY 8 WEEKS
     Route: 058
     Dates: start: 20200122

REACTIONS (23)
  - Eye irritation [Unknown]
  - Lower respiratory tract infection [Unknown]
  - Blood pressure abnormal [Unknown]
  - Rash [Unknown]
  - Condition aggravated [Unknown]
  - Pyrexia [Unknown]
  - Fatigue [Unknown]
  - Breath odour [Unknown]
  - Dysphonia [Unknown]
  - Temperature intolerance [Unknown]
  - Skin swelling [Unknown]
  - Oropharyngeal pain [Unknown]
  - Sneezing [Unknown]
  - Tinnitus [Unknown]
  - Nasal congestion [Unknown]
  - Rhinorrhoea [Unknown]
  - Platelet count decreased [Unknown]
  - Illness [Unknown]
  - Erythema [Unknown]
  - Cryopyrin associated periodic syndrome [Unknown]
  - Blister [Unknown]
  - Productive cough [Unknown]
  - Ocular hyperaemia [Unknown]

NARRATIVE: CASE EVENT DATE: 2018
